FAERS Safety Report 20661206 (Version 1)
Quarter: 2022Q2

REPORT INFORMATION
  Report Type: Spontaneous
  Country: NO (occurrence: NO)
  Receive Date: 20220401
  Receipt Date: 20220401
  Transmission Date: 20220721
  Serious: Yes (Death, Life-Threatening, Hospitalization, Other)
  Sender: FDA-Public Use
  Company Number: NO-STRIDES ARCOLAB LIMITED-2022SP003314

PATIENT
  Age: 71 Year
  Sex: Male

DRUGS (8)
  1. PREDNISOLONE [Suspect]
     Active Substance: PREDNISOLONE
     Indication: Immunoglobulin G4 related disease
     Dosage: 50 MILLIGRAM,PER DAY
     Route: 048
     Dates: start: 2018
  2. PREDNISOLONE [Suspect]
     Active Substance: PREDNISOLONE
     Dosage: 45 MILLIGRAM,PER DAY
     Route: 048
     Dates: start: 2018
  3. PREDNISOLONE [Suspect]
     Active Substance: PREDNISOLONE
     Dosage: 30 MILLIGRAM,PER DAY
     Route: 048
     Dates: start: 2019
  4. PREDNISOLONE [Suspect]
     Active Substance: PREDNISOLONE
     Dosage: 20 MILLIGRAM,PER DAY
     Route: 048
     Dates: start: 2019
  5. PREDNISOLONE [Suspect]
     Active Substance: PREDNISOLONE
     Dosage: 50 MILLIGRAM,PER DAY
     Route: 048
     Dates: start: 2020
  6. PREDNISOLONE [Suspect]
     Active Substance: PREDNISOLONE
     Dosage: 40 MILLIGRAM PER DAY
     Route: 065
  7. MYCOPHENOLATE MOFETIL [Suspect]
     Active Substance: MYCOPHENOLATE MOFETIL
     Indication: Immunoglobulin G4 related disease
     Dosage: 1 GRAM,TWICE A DAY
     Route: 048
     Dates: start: 2019
  8. RITUXIMAB [Suspect]
     Active Substance: RITUXIMAB
     Indication: Immunoglobulin G4 related disease
     Dosage: 1000 MILLIGRAM,TWO INDUCTION DOSES
     Route: 042
     Dates: start: 201908

REACTIONS (8)
  - Pneumonia aspiration [Fatal]
  - Disseminated strongyloidiasis [Fatal]
  - Septic shock [Unknown]
  - Acute kidney injury [Unknown]
  - Escherichia infection [Recovered/Resolved]
  - Enterococcal infection [Unknown]
  - Bacteraemia [Unknown]
  - Off label use [Unknown]

NARRATIVE: CASE EVENT DATE: 20190101
